FAERS Safety Report 8200294-0 (Version None)
Quarter: 2012Q1

REPORT INFORMATION
  Report Type: 
  Country: None (occurrence: None)
  Receive Date: 20120312
  Receipt Date: 20120229
  Transmission Date: 20120608
  Serious: Yes (Life-Threatening, Hospitalization, Disabling)
  Sender: FDA-Public Use
  Company Number: JP-SANOFI-AVENTIS-2012SA014563

PATIENT
  Age: 45 Year
  Sex: Female
  Weight: 92.8 kg

DRUGS (6)
  1. AMARYL [Suspect]
     Indication: DIABETES MELLITUS
     Route: 048
     Dates: start: 20090101
  2. BENIDIPINE HYDROCHLORIDE [Concomitant]
     Indication: HYPERTENSION
     Route: 048
  3. PIOGLITAZONE [Concomitant]
     Route: 048
  4. PRANLUKAST [Concomitant]
     Route: 048
  5. CANDESARTAN CILEXETIL [Suspect]
     Indication: HYPERTENSION
     Route: 048
     Dates: start: 20090101
  6. THEOPHYLLINE [Concomitant]
     Route: 048

REACTIONS (3)
  - OLIGOHYDRAMNIOS [None]
  - MECONIUM STAIN [None]
  - MATERNAL EXPOSURE DURING PREGNANCY [None]
